FAERS Safety Report 16875321 (Version 3)
Quarter: 2019Q4

REPORT INFORMATION
  Report Type: Report from Study
  Country: JP (occurrence: JP)
  Receive Date: 20191001
  Receipt Date: 20191122
  Transmission Date: 20200122
  Serious: Yes (Other)
  Sender: FDA-Public Use
  Company Number: JP-AMGEN-JPNCT2019159580

PATIENT
  Age: 75 Year
  Sex: Female

DRUGS (12)
  1. METHYLPREDNISOLONE SODIUM SUCCINATE. [Concomitant]
     Active Substance: METHYLPREDNISOLONE SODIUM SUCCINATE
     Dosage: 500 MILLIGRAM
     Route: 041
     Dates: start: 20190228, end: 20190304
  2. POTELIGEO [Suspect]
     Active Substance: MOGAMULIZUMAB-KPKC
     Indication: ANAPLASTIC LARGE CELL LYMPHOMA T- AND NULL-CELL TYPES
     Dosage: 2 CYCLES
     Route: 065
     Dates: start: 201901, end: 201901
  3. DAIPHEN [Concomitant]
     Active Substance: SULFAMETHOXAZOLE\TRIMETHOPRIM
     Indication: PROPHYLAXIS
     Dosage: UNK
     Route: 048
     Dates: start: 20190129
  4. METHYLPREDNISOLONE SODIUM SUCCINATE. [Concomitant]
     Active Substance: METHYLPREDNISOLONE SODIUM SUCCINATE
     Indication: ANAPLASTIC LARGE CELL LYMPHOMA T- AND NULL-CELL TYPES
     Dosage: 500 MILLIGRAM
     Route: 041
     Dates: start: 20190130, end: 20190203
  5. CYTARABINE. [Suspect]
     Active Substance: CYTARABINE
     Dosage: 2400 MILLIGRAM
     Route: 041
     Dates: start: 20190304, end: 20190304
  6. CISPLATIN. [Suspect]
     Active Substance: CISPLATIN
     Dosage: 38.375 MILLIGRAM
     Route: 041
     Dates: start: 20190228, end: 20190303
  7. ETOPOSIDE. [Suspect]
     Active Substance: ETOPOSIDE
     Indication: ANAPLASTIC LARGE CELL LYMPHOMA T- AND NULL-CELL TYPES
     Dosage: 61.4 MILLIGRAM
     Route: 041
     Dates: start: 20190130, end: 20190202
  8. CYTARABINE. [Suspect]
     Active Substance: CYTARABINE
     Indication: ANAPLASTIC LARGE CELL LYMPHOMA T- AND NULL-CELL TYPES
     Dosage: 2400 MILLIGRAM
     Route: 041
     Dates: start: 20190203, end: 20190203
  9. PEGFILGRASTIM [Suspect]
     Active Substance: PEGFILGRASTIM
     Indication: PRODUCT USED FOR UNKNOWN INDICATION
     Dosage: 3.6 MILLIGRAM, QD
     Route: 058
     Dates: start: 20190205, end: 20190205
  10. ETOPOSIDE. [Suspect]
     Active Substance: ETOPOSIDE
     Dosage: 61.4 MILLIGRAM
     Route: 041
     Dates: start: 20190228, end: 20190303
  11. PEGFILGRASTIM [Suspect]
     Active Substance: PEGFILGRASTIM
     Dosage: 3.6 MILLIGRAM, QD
     Route: 058
     Dates: start: 20190306, end: 20190306
  12. CISPLATIN. [Suspect]
     Active Substance: CISPLATIN
     Indication: ANAPLASTIC LARGE CELL LYMPHOMA T- AND NULL-CELL TYPES
     Dosage: 38.375 MILLIGRAM
     Route: 058
     Dates: start: 20190130, end: 20190202

REACTIONS (3)
  - Lymphocyte count decreased [Recovered/Resolved]
  - Hypokalaemia [Recovered/Resolved]
  - White blood cell count decreased [Recovered/Resolved]

NARRATIVE: CASE EVENT DATE: 20190204
